FAERS Safety Report 6231851-9 (Version None)
Quarter: 2009Q2

REPORT INFORMATION
  Report Type: 
  Country: None (occurrence: None)
  Receive Date: 20090616
  Receipt Date: 20090609
  Transmission Date: 20091009
  Serious: Yes (Hospitalization, Other)
  Sender: FDA-Public Use
  Company Number: JP-B.I. PHARMACEUTICALS,INC./RIDGEFIELD-2009-DE-04122GD

PATIENT
  Age: 68 Year
  Sex: Male

DRUGS (3)
  1. TELMISARTAN [Suspect]
  2. RANITIDINE [Suspect]
  3. TICLOPIDINE [Suspect]

REACTIONS (8)
  - ABDOMINAL PAIN [None]
  - DIARRHOEA [None]
  - LEUKOCYTOCLASTIC VASCULITIS [None]
  - PURPURA [None]
  - PYREXIA [None]
  - RENAL FAILURE [None]
  - THROMBOTIC THROMBOCYTOPENIC PURPURA [None]
  - TOXIC SKIN ERUPTION [None]
